FAERS Safety Report 20046473 (Version 1)
Quarter: 2021Q4

REPORT INFORMATION
  Report Type: Spontaneous
  Country: US (occurrence: US)
  Receive Date: 20211109
  Receipt Date: 20211109
  Transmission Date: 20220304
  Serious: No
  Sender: FDA-Public Use
  Company Number: US-BIOVITRUM-2021US9863

PATIENT
  Sex: Female
  Weight: 8 kg

DRUGS (1)
  1. SYNAGIS [Suspect]
     Active Substance: PALIVIZUMAB
     Indication: Illness
     Dosage: 15 MG/KG OF 100MG/1ML AND 15 MG/KG OF 50MG/0.5ML
     Route: 030

REACTIONS (2)
  - Adverse drug reaction [Unknown]
  - Off label use [Unknown]
